FAERS Safety Report 21031935 (Version 5)
Quarter: 2022Q3

REPORT INFORMATION
  Report Type: Spontaneous
  Country: None (occurrence: US)
  Receive Date: 20220701
  Receipt Date: 20220830
  Transmission Date: 20221026
  Serious: Yes (Hospitalization, Other)
  Sender: FDA-Public Use
  Company Number: US-Ajanta Pharma USA Inc.-2130466

PATIENT
  Age: 56 Year
  Sex: Male
  Weight: 63.182 kg

DRUGS (17)
  1. RANOLAZINE [Suspect]
     Active Substance: RANOLAZINE
     Indication: Chest discomfort
     Dates: start: 202004
  2. ISOSORBIDE [Concomitant]
     Active Substance: ISOSORBIDE
  3. DOXYCYCLINE [Concomitant]
     Active Substance: DOXYCYCLINE
  4. TRAMADOL [Concomitant]
     Active Substance: TRAMADOL
     Route: 048
  5. TRULICITY [Concomitant]
     Active Substance: DULAGLUTIDE
  6. HYDROCODONE BITARTRATE AND ACETAMINOPHEN [Concomitant]
     Active Substance: ACETAMINOPHEN\HYDROCODONE BITARTRATE
  7. GABAPENTIN [Concomitant]
     Active Substance: GABAPENTIN
     Route: 048
  8. REPATHA [Concomitant]
     Active Substance: EVOLOCUMAB
  9. METOPROLOL SUCCINATE [Concomitant]
     Active Substance: METOPROLOL SUCCINATE
  10. LISINOPRIL [Concomitant]
     Active Substance: LISINOPRIL
     Route: 048
  11. ASPIRIN [Concomitant]
     Active Substance: ASPIRIN
     Route: 048
     Dates: start: 20200921
  12. RANEXA [Concomitant]
     Active Substance: RANOLAZINE
  13. NITROGLYCERIN [Concomitant]
     Active Substance: NITROGLYCERIN
     Route: 060
  14. PLAVIX [Concomitant]
     Active Substance: CLOPIDOGREL BISULFATE
     Route: 048
     Dates: start: 20200921
  15. ZETIA [Concomitant]
     Active Substance: EZETIMIBE
     Route: 048
  16. CARVEDILOL [Concomitant]
     Active Substance: CARVEDILOL
  17. DIAZEPAM [Concomitant]
     Active Substance: DIAZEPAM

REACTIONS (15)
  - Coronary artery disease [Unknown]
  - Myocardial infarction [Recovered/Resolved]
  - Vein collapse [Recovered/Resolved]
  - Retching [Not Recovered/Not Resolved]
  - Vomiting [Recovered/Resolved]
  - Product dose omission issue [Recovered/Resolved]
  - Product residue present [Recovered/Resolved]
  - Product size issue [Not Recovered/Not Resolved]
  - Nausea [Not Recovered/Not Resolved]
  - Dizziness [Not Recovered/Not Resolved]
  - Presyncope [Unknown]
  - Arteriosclerosis coronary artery [Unknown]
  - Bradycardia [Recovered/Resolved]
  - Pain [Recovering/Resolving]
  - Haemoglobin decreased [Unknown]

NARRATIVE: CASE EVENT DATE: 20200401
